FAERS Safety Report 9210143 (Version 2)
Quarter: 2014Q1

REPORT INFORMATION
  Report Type: Spontaneous
  Country: GB (occurrence: GB)
  Receive Date: 20130404
  Receipt Date: 20140221
  Transmission Date: 20141002
  Serious: Yes (Other)
  Sender: FDA-Public Use
  Company Number: GB-TEVA-393972ISR

PATIENT
  Sex: Female

DRUGS (4)
  1. AMIODARONE [Suspect]
     Indication: ATRIAL FIBRILLATION
     Dosage: 200 MILLIGRAM DAILY;
     Route: 065
     Dates: start: 20120520, end: 20120905
  2. AMIODARONE [Suspect]
     Dosage: 400 MILLIGRAM DAILY;
     Route: 065
     Dates: start: 20120512, end: 20120519
  3. AMIODARONE [Suspect]
     Dosage: 600 MILLIGRAM DAILY;
     Route: 065
     Dates: start: 20120504, end: 20120511
  4. FLECAINIDE [Suspect]
     Indication: ATRIAL FIBRILLATION
     Dosage: 50 MILLIGRAM DAILY;
     Route: 065
     Dates: start: 201209

REACTIONS (7)
  - Corneal deposits [Unknown]
  - Nausea [Unknown]
  - Cough [Unknown]
  - Fatigue [Unknown]
  - Alopecia [Unknown]
  - Dysgeusia [Unknown]
  - Dry mouth [Unknown]
